FAERS Safety Report 13407317 (Version 1)
Quarter: 2017Q2

REPORT INFORMATION
  Report Type: Other
  Country: GB (occurrence: FR)
  Receive Date: 20170405
  Receipt Date: 20170405
  Transmission Date: 20170830
  Serious: Yes (Other)
  Sender: FDA-Public Use
  Company Number: FR-INTERNATIONAL MEDICATION SYSTEMS, LIMITED-1065057

PATIENT
  Age: 57 Year
  Sex: Female

DRUGS (1)
  1. EPIPEN [Suspect]
     Active Substance: EPINEPHRINE

REACTIONS (4)
  - Paraesthesia [Recovering/Resolving]
  - Hypoaesthesia [Recovering/Resolving]
  - Cyanosis [Recovering/Resolving]
  - Accidental exposure to product [Recovering/Resolving]
